FAERS Safety Report 4500343-7 (Version None)
Quarter: 2004Q4

REPORT INFORMATION
  Report Type: 
  Country: None (occurrence: None)
  Receive Date: 20041112
  Receipt Date: 20041103
  Transmission Date: 20050328
  Serious: Yes (Life-Threatening, Hospitalization, Disabling)
  Sender: FDA-Public Use
  Company Number: US-MERCK-0411USA00565

PATIENT
  Age: 56 Year
  Sex: Female

DRUGS (11)
  1. VIOXX [Suspect]
     Indication: ARTHRITIS
     Route: 048
  2. PREMARIN [Concomitant]
     Route: 065
  3. ZOCOR [Concomitant]
     Route: 048
  4. ATENOLOL [Concomitant]
     Route: 065
  5. PROVERA [Concomitant]
     Route: 065
  6. VALIUM [Concomitant]
     Route: 065
  7. HYDROCODONE BITARTRATE [Concomitant]
     Route: 065
  8. PROTONIX [Concomitant]
     Route: 065
  9. CORTICOTROPIN [Concomitant]
     Route: 051
  10. POTASSIUM (UNSPECIFIED) [Concomitant]
     Route: 065
  11. SYMMETREL [Concomitant]
     Route: 065

REACTIONS (4)
  - HYPERTENSION [None]
  - PULMONARY EMBOLISM [None]
  - TACHYCARDIA [None]
  - THROMBOSIS [None]
